FAERS Safety Report 10211274 (Version 1)
Quarter: 2014Q2

REPORT INFORMATION
  Report Type: Report from Study
  Country: BR (occurrence: BR)
  Receive Date: 20140602
  Receipt Date: 20140602
  Transmission Date: 20141212
  Serious: Yes (Hospitalization, Other)
  Sender: FDA-Public Use
  Company Number: PHHY2014BR066066

PATIENT
  Age: 76 Year
  Sex: Female
  Weight: 52 kg

DRUGS (3)
  1. EXELON [Suspect]
     Dosage: UNK UKN, UNK
  2. EXELON [Suspect]
     Dosage: 8 TABLET IN ONE DAY
  3. EXELON [Suspect]
     Dosage: 10 TABLET IN ONE DAY

REACTIONS (14)
  - Incorrect dose administered [Unknown]
  - Diabetes mellitus [Unknown]
  - Hypoaesthesia [Unknown]
  - Arthralgia [Unknown]
  - Tooth injury [Unknown]
  - Limb injury [Unknown]
  - Blood pressure abnormal [Unknown]
  - Memory impairment [Unknown]
  - Fall [Unknown]
  - Asthenia [Unknown]
  - Dizziness [Unknown]
  - Nausea [Unknown]
  - Tremor [Unknown]
  - Malaise [Unknown]
